FAERS Safety Report 4314767-4 (Version None)
Quarter: 2004Q1

REPORT INFORMATION
  Report Type: 
  Country: None (occurrence: None)
  Receive Date: 20040308
  Receipt Date: 20040227
  Transmission Date: 20041129
  Serious: Yes (Death)
  Sender: FDA-Public Use
  Company Number: GBWYE497108JAN04

PATIENT
  Age: 69 Year
  Sex: Female

DRUGS (10)
  1. EFFEXOR XR [Suspect]
     Indication: DEPRESSION
     Dosage: 75 MG 1 X PER 1 DAY
     Route: 048
     Dates: start: 20031002
  2. COMBIVENT [Concomitant]
  3. CO-PROXAMOL (DEXTROPROPOXYPHENE HYDROCHLORIDE/PARACETAMOL) [Concomitant]
  4. CALCICHEW-D3 (CALCIUM CARBONATE/ COLECALCIFEROL) [Concomitant]
  5. BENDROFLUAZIDE (BENDROFLUMETHIAZIDE) [Concomitant]
  6. LOSEC (OMEPRAZOLE) [Concomitant]
  7. PREMARIN [Concomitant]
  8. FLUTICASONE PROPIONATE [Concomitant]
  9. ISOSORBIDE MONONITRATE [Concomitant]
  10. AMLODIPINE [Concomitant]

REACTIONS (4)
  - ANXIETY [None]
  - CARDIO-RESPIRATORY ARREST [None]
  - CIRCULATORY COLLAPSE [None]
  - DEPRESSION [None]
